FAERS Safety Report 21122206 (Version 2)
Quarter: 2022Q4

REPORT INFORMATION
  Report Type: Spontaneous
  Country: CA (occurrence: CA)
  Receive Date: 20220722
  Receipt Date: 20221026
  Transmission Date: 20230113
  Serious: Yes (Life-Threatening, Hospitalization, Other)
  Sender: FDA-Public Use
  Company Number: CA-SA-SAC20220721000598

PATIENT
  Age: 55 Year
  Sex: Female
  Weight: 105 kg

DRUGS (9)
  1. LOVENOX [Suspect]
     Active Substance: ENOXAPARIN SODIUM
     Indication: Thrombosis prophylaxis
     Dosage: 40 MG, BID
     Route: 058
     Dates: start: 20210613, end: 20210801
  2. SOYBEAN OIL [Concomitant]
     Active Substance: SOYBEAN OIL
  3. ONDANSETRON [Concomitant]
     Active Substance: ONDANSETRON
  4. METOPROLOL [Concomitant]
     Active Substance: METOPROLOL
  5. FISH OIL [Concomitant]
     Active Substance: FISH OIL
  6. ACETAMINOPHEN [Concomitant]
     Active Substance: ACETAMINOPHEN
  7. OLIVE OIL [Concomitant]
     Active Substance: OLIVE OIL
  8. GLYCERIN [Concomitant]
     Active Substance: GLYCERIN
  9. DIMENHYDRINATE [Concomitant]
     Active Substance: DIMENHYDRINATE

REACTIONS (3)
  - Deep vein thrombosis [Recovered/Resolved]
  - Device related thrombosis [Recovered/Resolved]
  - Heparin-induced thrombocytopenia [Recovered/Resolved]

NARRATIVE: CASE EVENT DATE: 20210809
